FAERS Safety Report 9669993 (Version 1)
Quarter: 2013Q4

REPORT INFORMATION
  Report Type: Spontaneous
  Country: US (occurrence: None)
  Receive Date: 20131104
  Receipt Date: 20131104
  Transmission Date: 20140711
  Serious: Yes (Hospitalization)
  Sender: FDA-Public Use
  Company Number: 2013P1020555

PATIENT
  Sex: Male

DRUGS (1)
  1. NILANDRON [Suspect]

REACTIONS (1)
  - Unevaluable event [None]
